FAERS Safety Report 9946292 (Version 1)
Quarter: 2014Q1

REPORT INFORMATION
  Report Type: Spontaneous
  Country: US (occurrence: US)
  Receive Date: 20140303
  Receipt Date: 20140303
  Transmission Date: 20141002
  Serious: No
  Sender: FDA-Public Use
  Company Number: US-AMGEN-USASP2014006120

PATIENT
  Age: 56 Year
  Sex: Female

DRUGS (2)
  1. ENBREL [Suspect]
     Indication: PSORIATIC ARTHROPATHY
     Dosage: 50 MG, QWK
     Route: 065
     Dates: start: 20121024
  2. METHOTREXATE [Suspect]
     Indication: PRODUCT USED FOR UNKNOWN INDICATION
     Dosage: UNK
     Route: 065
     Dates: start: 2012, end: 2013

REACTIONS (4)
  - Alopecia [Recovered/Resolved]
  - Psoriatic arthropathy [Recovered/Resolved]
  - Upper respiratory tract infection bacterial [Recovered/Resolved]
  - Injection site pain [Not Recovered/Not Resolved]
